FAERS Safety Report 8775595 (Version 1)
Quarter: 2012Q4

REPORT INFORMATION
  Report Type: 
  Country: GB (occurrence: GB)
  Receive Date: 20120910
  Receipt Date: 20120910
  Transmission Date: 20130627
  Serious: Yes (Other)
  Sender: FDA-Public Use
  Company Number: GB-JNJFOC-20120900615

PATIENT
  Age: 47 Year
  Sex: Female
  Weight: 73.02 kg

DRUGS (3)
  1. SPORANOX [Suspect]
     Indication: FUNGAL SKIN INFECTION
     Route: 048
     Dates: start: 20120601
  2. FERROUS SULPHATE [Concomitant]
     Indication: PRODUCT USED FOR UNKNOWN INDICATION
     Route: 048
  3. TRANEXAMIC ACID [Concomitant]
     Indication: PRODUCT USED FOR UNKNOWN INDICATION
     Route: 048

REACTIONS (1)
  - Drug-induced liver injury [Recovered/Resolved]
